FAERS Safety Report 18230153 (Version 1)
Quarter: 2020Q3

REPORT INFORMATION
  Report Type: Spontaneous
  Country: US (occurrence: US)
  Receive Date: 20200903
  Receipt Date: 20200903
  Transmission Date: 20201103
  Serious: Yes (Disabling, Other)
  Sender: FDA-Public Use
  Company Number: US-PURDUE-USA-2020-0164364

PATIENT

DRUGS (2)
  1. FENTANYL. [Suspect]
     Active Substance: FENTANYL
     Indication: ARTHRALGIA
     Dosage: 100 MG, (15 PATCHES MONTHLY)
     Route: 062
     Dates: start: 20140718, end: 20170406
  2. OXYCODONE HYDROCHLORIDE (SIMILAR TO NDA 22?272) [Suspect]
     Active Substance: OXYCODONE HYDROCHLORIDE
     Indication: ARTHRALGIA
     Dosage: 20 MG, (180 TABLETS MONTHLY)
     Route: 048
     Dates: start: 20140718, end: 20170406

REACTIONS (4)
  - Antisocial behaviour [Unknown]
  - Disability [Unknown]
  - Impaired self-care [Unknown]
  - Drug dependence [Unknown]
